FAERS Safety Report 23578478 (Version 4)
Quarter: 2025Q3

REPORT INFORMATION
  Report Type: Spontaneous
  Country: EU (occurrence: EU)
  Receive Date: 20240229
  Receipt Date: 20250731
  Transmission Date: 20251021
  Serious: Yes (Hospitalization, Other)
  Sender: SANDOZ
  Company Number: EU-SUN PHARMACEUTICAL INDUSTRIES LTD-2022RR-355865

PATIENT
  Age: 71 Year
  Sex: Female

DRUGS (9)
  1. CARBOPLATIN [Suspect]
     Active Substance: CARBOPLATIN
     Indication: Large cell lung cancer metastatic
     Route: 065
  2. CISPLATIN [Suspect]
     Active Substance: CISPLATIN
     Indication: Large cell lung cancer metastatic
     Route: 042
     Dates: start: 20210209, end: 20210302
  3. PEMETREXED [Suspect]
     Active Substance: PEMETREXED
     Indication: Large cell lung cancer metastatic
     Route: 065
     Dates: start: 20210209
  4. PEMBROLIZUMAB [Suspect]
     Active Substance: PEMBROLIZUMAB
     Indication: Large cell lung cancer metastatic
     Route: 042
     Dates: start: 20210209, end: 20210928
  5. PEMBROLIZUMAB [Suspect]
     Active Substance: PEMBROLIZUMAB
     Indication: Large cell lung cancer metastatic
     Route: 065
     Dates: end: 20210907
  6. PEMETREXED [Suspect]
     Active Substance: PEMETREXED
     Indication: Large cell lung cancer metastatic
     Route: 042
     Dates: start: 20210209, end: 20210928
  7. DEXAMETHASONE [Concomitant]
     Active Substance: DEXAMETHASONE
     Indication: Product used for unknown indication
     Route: 065
  8. FOLIC ACID [Concomitant]
     Active Substance: FOLIC ACID
     Indication: Premedication
     Route: 065
  9. VITAMIN B12 [Concomitant]
     Active Substance: CYANOCOBALAMIN
     Indication: Product used for unknown indication
     Route: 065

REACTIONS (9)
  - Fatigue [Recovering/Resolving]
  - Acute kidney injury [Recovered/Resolved]
  - Disease progression [Unknown]
  - Therapy partial responder [Unknown]
  - Autoimmune hypothyroidism [Not Recovered/Not Resolved]
  - Hyperthyroidism [Unknown]
  - Large cell lung cancer metastatic [Unknown]
  - Malignant neoplasm progression [Unknown]
  - Product use in unapproved indication [Unknown]

NARRATIVE: CASE EVENT DATE: 20210101
